FAERS Safety Report 11186580 (Version 7)
Quarter: 2016Q2

REPORT INFORMATION
  Report Type: Spontaneous
  Country: BR (occurrence: BR)
  Receive Date: 20150613
  Receipt Date: 20160617
  Transmission Date: 20160815
  Serious: Yes (Other)
  Sender: FDA-Public Use
  Company Number: PHHY2015BR070786

PATIENT
  Age: 70 Year
  Sex: Female
  Weight: 86 kg

DRUGS (2)
  1. GALVUS MET [Suspect]
     Active Substance: METFORMIN HYDROCHLORIDE\VILDAGLIPTIN
     Indication: DIABETES MELLITUS
     Dosage: 1 DF (CAPSULE), BID (MORNING AND EVENING)
     Route: 048
  2. DIOVAN HCT [Suspect]
     Active Substance: HYDROCHLOROTHIAZIDE\VALSARTAN
     Indication: HYPERTENSION
     Dosage: 1 DF QD
     Route: 048

REACTIONS (9)
  - Blood glucose increased [Recovered/Resolved]
  - Tremor [Unknown]
  - Vein disorder [Unknown]
  - Constipation [Unknown]
  - Hypoglycaemia [Recovered/Resolved]
  - Blood cholesterol increased [Recovering/Resolving]
  - Muscle spasms [Unknown]
  - Varicose vein [Unknown]
  - Diabetes mellitus inadequate control [Unknown]
